FAERS Safety Report 18946943 (Version 1)
Quarter: 2021Q1

REPORT INFORMATION
  Report Type: Spontaneous
  Country: US (occurrence: US)
  Receive Date: 20210226
  Receipt Date: 20210226
  Transmission Date: 20210420
  Serious: Yes (Life-Threatening, Other)
  Sender: FDA-Public Use
  Company Number: US-SA-2021SA066296

PATIENT
  Sex: Female

DRUGS (1)
  1. LOVENOX [Suspect]
     Active Substance: ENOXAPARIN SODIUM
     Indication: COVID-19
     Dosage: UNK UNK, QD
     Dates: start: 202101

REACTIONS (4)
  - Inability to afford medication [Unknown]
  - Exposure during pregnancy [Unknown]
  - Thrombosis [Unknown]
  - Off label use [Unknown]
